FAERS Safety Report 5075835-5 (Version None)
Quarter: 2006Q3

REPORT INFORMATION
  Report Type: 
  Country: None (occurrence: None)
  Receive Date: 20060807
  Receipt Date: 20060730
  Transmission Date: 20061208
  Serious: Yes (Other)
  Sender: FDA-Public Use
  Company Number: 2006092692

PATIENT
  Age: 58 Year
  Sex: Male
  Weight: 113.3993 kg

DRUGS (5)
  1. GENOTROPIN [Suspect]
     Indication: BLOOD GROWTH HORMONE DECREASED
     Dosage: 0.4 MG         4 MONTHS AGO
  2. TESTOSTERONE [Concomitant]
  3. GLUCOTROL [Concomitant]
  4. CALCIUM (CALCIUM) [Concomitant]
  5. PREVACID [Concomitant]

REACTIONS (2)
  - HEPATITIS C [None]
  - VIRAL LOAD INCREASED [None]
